FAERS Safety Report 8258028-X (Version None)
Quarter: 2012Q1

REPORT INFORMATION
  Report Type: 
  Country: None (occurrence: None)
  Receive Date: 20120322
  Receipt Date: 20120125
  Transmission Date: 20120608
  Serious: Yes (Hospitalization)
  Sender: FDA-Public Use
  Company Number: UTC-013436

PATIENT
  Age: 13 Year
  Sex: Male
  Weight: 56.8 kg

DRUGS (4)
  1. TYVASO [Suspect]
     Indication: HEREDITARY HAEMORRHAGIC TELANGIECTASIA
     Dosage: 108 MCG (36 MCG,3 IN 1 D),INHALATION
     Route: 055
     Dates: start: 20110318
  2. TYVASO [Suspect]
     Indication: COR PULMONALE CHRONIC
     Dosage: 108 MCG (36 MCG,3 IN 1 D),INHALATION
     Route: 055
     Dates: start: 20110318
  3. LETAIRIS [Concomitant]
  4. OXYGEN (OXYGEN) [Concomitant]

REACTIONS (3)
  - SYNCOPE [None]
  - ABNORMAL BEHAVIOUR [None]
  - PRESYNCOPE [None]
